FAERS Safety Report 5413351-9 (Version None)
Quarter: 2007Q3

REPORT INFORMATION
  Report Type: 
  Country: None (occurrence: None)
  Receive Date: 20070814
  Receipt Date: 20070810
  Transmission Date: 20080115
  Serious: Yes (Death)
  Sender: FDA-Public Use
  Company Number: US-BRISTOL-MYERS SQUIBB COMPANY-13874623

PATIENT
  Age: 87 Year
  Sex: Female

DRUGS (3)
  1. COUMADIN [Suspect]
     Indication: ATRIAL FIBRILLATION
     Dosage: STARTED IN 2002 OR 2003.
  2. PLAVIX [Suspect]
  3. LOVENOX [Suspect]

REACTIONS (3)
  - DEATH [None]
  - GASTROINTESTINAL DISORDER [None]
  - INTRA-ABDOMINAL HAEMATOMA [None]
